FAERS Safety Report 21482607 (Version 1)
Quarter: 2022Q4

REPORT INFORMATION
  Report Type: Spontaneous
  Country: CN (occurrence: CN)
  Receive Date: 20221020
  Receipt Date: 20221020
  Transmission Date: 20230113
  Serious: Yes (Other)
  Sender: FDA-Public Use
  Company Number: None

PATIENT
  Age: 57 Year
  Sex: Female
  Weight: 57 kg

DRUGS (4)
  1. CYCLOPHOSPHAMIDE [Suspect]
     Active Substance: CYCLOPHOSPHAMIDE
     Indication: Breast cancer female
     Dosage: 0.95 G, QD, DILUTED WITH SODIUM CHLORIDE 100 ML, FIRST CHEMOTHERAPY
     Route: 041
     Dates: start: 20220509, end: 20220509
  2. SODIUM CHLORIDE [Suspect]
     Active Substance: SODIUM CHLORIDE
     Indication: Medication dilution
     Dosage: 100 ML, QD, DILUTED IN CYCLOPHOSPHAMIDE (0.95 G), FIRST CHEMOTHERAPY
     Route: 041
     Dates: start: 20220509, end: 20220509
  3. SODIUM CHLORIDE [Suspect]
     Active Substance: SODIUM CHLORIDE
     Dosage: 100 ML, QD, DILUTED IN PHARMORUBICIN 140 MG, FIRST CHEMOTHERAPY
     Route: 041
     Dates: start: 20220509, end: 20220509
  4. EPIRUBICIN [Suspect]
     Active Substance: EPIRUBICIN
     Indication: Breast cancer female
     Dosage: 140 MG, QD, DILUTED WITH SODIUM CHLORIDE 100 ML, FIRST CHEMOTHERAPY
     Route: 041
     Dates: start: 20220509, end: 20220509

REACTIONS (1)
  - Granulocyte count decreased [Recovered/Resolved]

NARRATIVE: CASE EVENT DATE: 20220518
